FAERS Safety Report 6505954-5 (Version None)
Quarter: 2009Q4

REPORT INFORMATION
  Report Type: 
  Country: None (occurrence: None)
  Receive Date: 20091218
  Receipt Date: 20091215
  Transmission Date: 20100525
  Serious: Yes (Death, Hospitalization)
  Sender: FDA-Public Use
  Company Number: JP-BAYER-200913720BYL

PATIENT
  Age: 67 Year
  Sex: Female
  Weight: 56 kg

DRUGS (17)
  1. NEXAVAR [Suspect]
     Indication: HEPATIC NEOPLASM MALIGNANT
     Dosage: UNIT DOSE: 200 MG
     Route: 048
     Dates: start: 20090817, end: 20090907
  2. NEXAVAR [Suspect]
     Dosage: UNIT DOSE: 200 MG
     Route: 048
     Dates: start: 20090907, end: 20090914
  3. NEXAVAR [Suspect]
     Dosage: UNIT DOSE: 200 MG
     Route: 048
     Dates: start: 20090914, end: 20090925
  4. DEPAS [Concomitant]
     Route: 048
     Dates: start: 20030901, end: 20090202
  5. MYSLEE [Concomitant]
     Route: 048
     Dates: start: 20030901
  6. PURSENNID [Concomitant]
     Indication: CONSTIPATION PROPHYLAXIS
     Route: 048
     Dates: start: 20030901
  7. DIOVAN [Concomitant]
     Route: 048
     Dates: start: 20090202
  8. ARTIST [Concomitant]
     Route: 048
     Dates: start: 20090202
  9. ADALAT CC [Concomitant]
     Route: 048
     Dates: start: 20090202
  10. LEVOTOMIN [Concomitant]
     Route: 048
     Dates: start: 20090202
  11. EURODIN [Concomitant]
     Route: 048
     Dates: start: 20090202
  12. TRYPTANOL [Concomitant]
     Route: 048
     Dates: start: 20090202
  13. LEXOTAN [Concomitant]
     Route: 048
     Dates: start: 20090202
  14. LASIX [Concomitant]
     Route: 048
     Dates: start: 20090202
  15. ALDACTONE [Concomitant]
     Route: 048
     Dates: start: 20090202
  16. AMARYL [Concomitant]
     Route: 048
     Dates: start: 20090202
  17. LIPITOR [Concomitant]
     Route: 048
     Dates: start: 20090202

REACTIONS (5)
  - DECREASED APPETITE [None]
  - HEPATIC NEOPLASM MALIGNANT [None]
  - MALAISE [None]
  - NEUROSIS [None]
  - PALMAR-PLANTAR ERYTHRODYSAESTHESIA SYNDROME [None]
